FAERS Safety Report 8449558-6 (Version None)
Quarter: 2012Q2

REPORT INFORMATION
  Report Type: 
  Country: None (occurrence: None)
  Receive Date: 20120620
  Receipt Date: 20120613
  Transmission Date: 20120825
  Serious: Yes (Other)
  Sender: FDA-Public Use
  Company Number: US-AMGEN-USASP2011021321

PATIENT
  Sex: Female
  Weight: 67.12 kg

DRUGS (6)
  1. COMPAZINE [Concomitant]
     Indication: NAUSEA
     Dosage: 10 MG, PRN
     Route: 048
     Dates: start: 20110120
  2. NEURONTIN [Concomitant]
     Indication: NEUROPATHY PERIPHERAL
     Dosage: 300 MG, TID
     Route: 048
     Dates: start: 20120419
  3. NORVASC [Concomitant]
     Indication: HYPERTENSION
     Dosage: 10 MG, UNK
     Route: 048
  4. NPLATE [Suspect]
     Indication: IDIOPATHIC THROMBOCYTOPENIC PURPURA
     Dosage: 65 MUG, UNK
     Route: 058
     Dates: start: 20110302
  5. SYNTHROID [Concomitant]
     Indication: THYROID DISORDER
     Dosage: 125 MUG, UNK
     Route: 048
     Dates: start: 20110616
  6. TOPROL-XL [Concomitant]
     Indication: HYPERTENSION
     Dosage: 50 MG, BID
     Route: 048
     Dates: start: 20110707

REACTIONS (1)
  - WALDENSTROM'S MACROGLOBULINAEMIA [None]
